FAERS Safety Report 17106322 (Version 14)
Quarter: 2020Q1

REPORT INFORMATION
  Report Type: Report from Study
  Country: TR (occurrence: TR)
  Receive Date: 20191203
  Receipt Date: 20200324
  Transmission Date: 20200409
  Serious: Yes (Death, Life-Threatening, Hospitalization)
  Sender: FDA-Public Use
  Company Number: TR-EISAI MEDICAL RESEARCH-EC-2019-066345

PATIENT
  Age: 65 Year
  Sex: Male
  Weight: 98 kg

DRUGS (6)
  1. FOLBIOL [Concomitant]
     Active Substance: FOLIC ACID
     Dates: start: 20191022, end: 20191125
  2. PEMETREXED. [Suspect]
     Active Substance: PEMETREXED
     Indication: NON-SMALL CELL LUNG CANCER
     Route: 041
     Dates: start: 20191107, end: 20191107
  3. LENVATINIB [Suspect]
     Active Substance: LENVATINIB
     Indication: NON-SMALL CELL LUNG CANCER
     Route: 048
     Dates: start: 20191107, end: 20191124
  4. CISPLATIN. [Suspect]
     Active Substance: CISPLATIN
     Indication: NON-SMALL CELL LUNG CANCER
     Route: 041
     Dates: start: 20191107, end: 20191107
  5. DODEX [Concomitant]
     Active Substance: CYANOCOBALAMIN
     Dates: start: 20191022, end: 20191125
  6. PEMBROLIZUMAB. [Suspect]
     Active Substance: PEMBROLIZUMAB
     Indication: NON-SMALL CELL LUNG CANCER
     Route: 041
     Dates: start: 20191107, end: 20191107

REACTIONS (3)
  - Myositis [Not Recovered/Not Resolved]
  - Hypertension [Recovered/Resolved]
  - Myocarditis [Fatal]

NARRATIVE: CASE EVENT DATE: 20191125
